FAERS Safety Report 9397793 (Version 3)
Quarter: 2014Q1

REPORT INFORMATION
  Report Type: Spontaneous
  Country: US (occurrence: US)
  Receive Date: 20130712
  Receipt Date: 20140116
  Transmission Date: 20141002
  Serious: Yes (Hospitalization, Other)
  Sender: FDA-Public Use
  Company Number: US-009507513-1307USA004443

PATIENT
  Sex: Female
  Weight: 53.52 kg

DRUGS (4)
  1. FOSAMAX [Suspect]
     Indication: OSTEOPOROSIS PROPHYLAXIS
     Dosage: 10 MG, QD
     Route: 048
     Dates: start: 1996, end: 200510
  2. FOSAMAX [Suspect]
     Dosage: 70 MG, QW
     Route: 048
     Dates: end: 200510
  3. CALCIUM (UNSPECIFIED) (+) VITAMIN D (UNSPECIFIED) [Concomitant]
     Dosage: 600 MG/800 IU, 2 PILLS DAILY
     Route: 048
     Dates: start: 2000
  4. BONIVA [Concomitant]
     Indication: OSTEOPOROSIS
     Dosage: 150 MG, MONTHLY
     Route: 048
     Dates: start: 200510

REACTIONS (24)
  - Intramedullary rod insertion [Unknown]
  - Bone graft [Unknown]
  - Fracture malunion [Unknown]
  - Open reduction of fracture [Unknown]
  - Shoulder arthroplasty [Unknown]
  - Open reduction of fracture [Unknown]
  - Anaemia postoperative [Unknown]
  - Fracture nonunion [Unknown]
  - Device failure [Unknown]
  - Osteomyelitis [Unknown]
  - Hip arthroplasty [Unknown]
  - Osteotomy [Unknown]
  - Shoulder arthroplasty [Unknown]
  - Femur fracture [Unknown]
  - Device failure [Unknown]
  - Osteomyelitis [Unknown]
  - Hypertension [Unknown]
  - Blood cholesterol increased [Unknown]
  - Breast lump removal [Unknown]
  - Osteoarthritis [Not Recovered/Not Resolved]
  - Drug dependence [Unknown]
  - Muscular weakness [Unknown]
  - Limb asymmetry [Unknown]
  - Joint dislocation [Unknown]
